FAERS Safety Report 4984214-8 (Version None)
Quarter: 2006Q2

REPORT INFORMATION
  Report Type: 
  Country: None (occurrence: None)
  Receive Date: 20060420
  Receipt Date: 20060410
  Transmission Date: 20061013
  Serious: Yes (Life-Threatening, Hospitalization)
  Sender: FDA-Public Use
  Company Number: 2006048656

PATIENT
  Age: 1 Year
  Sex: Male

DRUGS (2)
  1. AZITROMAX (AZITHROMYCIN) [Suspect]
     Indication: EAR INFECTION
     Dosage: 120 MG, ORAL
     Route: 048
     Dates: start: 20060211, end: 20060213
  2. PARACET (PARACETAMOL) [Concomitant]

REACTIONS (2)
  - HEPATIC FAILURE [None]
  - LIVER TRANSPLANT [None]
